FAERS Safety Report 9152358 (Version 1)
Quarter: 2013Q1

REPORT INFORMATION
  Report Type: Spontaneous
  Country: FR (occurrence: FR)
  Receive Date: 20130308
  Receipt Date: 20130308
  Transmission Date: 20140127
  Serious: Yes (Hospitalization, Other)
  Sender: FDA-Public Use
  Company Number: FR-PFIZER INC-2013075713

PATIENT
  Age: 33 Year
  Sex: Female

DRUGS (19)
  1. TAHOR [Suspect]
     Dosage: UNK
  2. CORTANCYL [Interacting]
     Indication: ORGAN TRANSPLANT
     Dosage: UNK
  3. ESOMEPRAZOLE [Interacting]
     Dosage: UNK
  4. PROGRAF [Suspect]
     Indication: ORGAN TRANSPLANT
     Dosage: 2.5 MG, 2X/DAY
     Dates: start: 20121211, end: 20130121
  5. PROGRAF [Suspect]
     Dosage: 2 MG, 2X/DAY
     Dates: start: 20130122, end: 20130122
  6. PROGRAF [Suspect]
     Dosage: 4.5 MG, 2X/DAY
     Dates: start: 20130123, end: 20130128
  7. PROGRAF [Suspect]
     Dosage: 2 MG, 2X/DAY
     Dates: start: 20130129, end: 20130129
  8. PROGRAF [Suspect]
     Dosage: 1 MG, 2X/DAY
     Dates: start: 20130130
  9. CELLCEPT [Concomitant]
     Dosage: 250 MG, 2X/DAY (ONE IN THE MORNING, ONE IN THE EVENING)
  10. APROVEL [Concomitant]
     Dosage: 75 MG, ONCE DAILY IN THE MORNING
  11. AMLODIPINE [Concomitant]
     Dosage: 5 MG, ONCE DAILY IN THE EVENING
  12. CALTRATE WITH VITAMIN D [Concomitant]
     Dosage: [CALCIUM 600 MG]/[CHOLECALCIFEROL 400 IU], DAILY IN THE MORNING
  13. RENAGEL [Concomitant]
     Dosage: 1 DF IN THE MORNING AND 2 DF AT NOON
  14. CREON [Concomitant]
     Dosage: 5 DF, 4X/DAY
  15. AZITHROMYCIN [Concomitant]
     Dosage: 2 DF, ONCE DAILY IN THE MORNING
  16. LOPERAMIDE [Concomitant]
     Dosage: 2 TO 6 CAPSULES DAILY
  17. DEXERYL [Concomitant]
     Dosage: 1 TUBE MONTHLY
  18. SODIUM BICARBONATE [Concomitant]
     Dosage: 3000 MG (SIX 500 MG CAPSULES), DAILY
  19. KAYEXALATE [Concomitant]
     Dosage: ONE SPOON IN THE MORNING

REACTIONS (18)
  - Overdose [Recovered/Resolved]
  - Vomiting [Recovered/Resolved]
  - Nausea [Recovered/Resolved]
  - Headache [Recovered/Resolved]
  - Decreased appetite [Recovered/Resolved]
  - Food intolerance [Recovered/Resolved]
  - Faecaloma [Unknown]
  - Body temperature decreased [Unknown]
  - Constipation [Unknown]
  - Pneumonia staphylococcal [Unknown]
  - Bacteraemia [Unknown]
  - Blood sodium decreased [Recovered/Resolved]
  - Blood potassium increased [Not Recovered/Not Resolved]
  - Glomerular filtration rate decreased [Not Recovered/Not Resolved]
  - Blood chloride decreased [Recovered/Resolved]
  - Blood chloride increased [Recovered/Resolved]
  - Drug level below therapeutic [Unknown]
  - Drug interaction [Recovered/Resolved]
